FAERS Safety Report 14523949 (Version 2)
Quarter: 2018Q1

REPORT INFORMATION
  Report Type: Report from Study
  Country: US (occurrence: US)
  Receive Date: 20180213
  Receipt Date: 20180305
  Transmission Date: 20180509
  Serious: Yes (Hospitalization, Other)
  Sender: FDA-Public Use
  Company Number: US-ROCHE-2066535

PATIENT
  Sex: Female

DRUGS (12)
  1. AVASTIN [Suspect]
     Active Substance: BEVACIZUMAB
     Indication: COLORECTAL CANCER METASTATIC
     Route: 042
     Dates: start: 201607, end: 201701
  2. AVASTIN [Suspect]
     Active Substance: BEVACIZUMAB
     Route: 042
     Dates: start: 201702, end: 201703
  3. 5-FU [Concomitant]
     Active Substance: FLUOROURACIL
     Indication: COLORECTAL CANCER METASTATIC
     Route: 042
     Dates: start: 201607, end: 201710
  4. FOLINIC ACID [Concomitant]
     Active Substance: LEUCOVORIN
     Route: 042
     Dates: start: 201702, end: 201703
  5. IRINOTECAN [Concomitant]
     Active Substance: IRINOTECAN
     Indication: COLORECTAL CANCER METASTATIC
  6. FOLINIC ACID [Concomitant]
     Active Substance: LEUCOVORIN
     Route: 042
     Dates: start: 201705, end: 201710
  7. HEPARIN [Concomitant]
     Active Substance: HEPARIN SODIUM
     Dosage: NOV/DEC/2017
     Route: 065
  8. FOLINIC ACID [Concomitant]
     Active Substance: LEUCOVORIN
     Indication: COLORECTAL CANCER METASTATIC
     Route: 042
     Dates: start: 201607, end: 201701
  9. FUDR [Concomitant]
     Active Substance: FLOXURIDINE
     Indication: COLORECTAL CANCER METASTATIC
  10. OXALIPLATIN. [Concomitant]
     Active Substance: OXALIPLATIN
     Indication: COLORECTAL CANCER METASTATIC
     Route: 042
     Dates: start: 201607, end: 201710
  11. NEULASTA [Concomitant]
     Active Substance: PEGFILGRASTIM
     Indication: COLORECTAL CANCER METASTATIC
     Route: 050
     Dates: start: 201607
  12. AVASTIN [Suspect]
     Active Substance: BEVACIZUMAB
     Route: 042
     Dates: start: 201705, end: 201710

REACTIONS (16)
  - Upper gastrointestinal haemorrhage [Unknown]
  - Off label use [Unknown]
  - Nausea [Unknown]
  - Vomiting [Unknown]
  - Pain in jaw [Unknown]
  - Neuropathy peripheral [Unknown]
  - Sleep disorder [Unknown]
  - Epistaxis [Unknown]
  - Ulcer [Unknown]
  - Infection [Unknown]
  - First bite syndrome [Unknown]
  - Balance disorder [Unknown]
  - Lacrimation increased [Unknown]
  - Pyrexia [Unknown]
  - Stomatitis [Unknown]
  - Anaemia [Unknown]
